FAERS Safety Report 12072716 (Version 1)
Quarter: 2016Q1

REPORT INFORMATION
  Report Type: Spontaneous
  Country: US (occurrence: None)
  Receive Date: 20160211
  Receipt Date: 20160211
  Transmission Date: 20160526
  Serious: Yes (Hospitalization)
  Sender: FDA-Public Use
  Company Number: None

PATIENT
  Age: 56 Year
  Sex: Male
  Weight: 79.65 kg

DRUGS (1)
  1. KYPROLIS [Suspect]
     Active Substance: CARFILZOMIB
     Indication: PLASMA CELL MYELOMA
     Dosage: 56MG/M2 6DAYS Q 28DAYS IV
     Route: 042
     Dates: start: 20151215, end: 20160208

REACTIONS (7)
  - Dyspnoea [None]
  - Wheezing [None]
  - Cough [None]
  - Chronic obstructive pulmonary disease [None]
  - Chest discomfort [None]
  - Respiratory failure [None]
  - Condition aggravated [None]

NARRATIVE: CASE EVENT DATE: 20160209
